FAERS Safety Report 25500002 (Version 2)
Quarter: 2025Q3

REPORT INFORMATION
  Report Type: Spontaneous
  Country: CN (occurrence: CN)
  Receive Date: 20250701
  Receipt Date: 20250722
  Transmission Date: 20251020
  Serious: Yes (Hospitalization, Other)
  Sender: RANBAXY
  Company Number: CN-SUN PHARMACEUTICAL INDUSTRIES LTD-2025R1-514430

PATIENT
  Age: 25 Year
  Sex: Female

DRUGS (8)
  1. DIGOXIN [Suspect]
     Active Substance: DIGOXIN
     Indication: Foetal arrhythmia
     Route: 065
  2. DIGOXIN [Suspect]
     Active Substance: DIGOXIN
     Route: 065
  3. SOTALOL [Suspect]
     Active Substance: SOTALOL
     Indication: Foetal arrhythmia
     Route: 065
  4. AMIODARONE [Suspect]
     Active Substance: AMIODARONE
     Indication: Atrial flutter
     Dosage: 1.8 GRAM, QD
     Route: 065
  5. DEXAMETHASONE [Suspect]
     Active Substance: DEXAMETHASONE
     Indication: Maternal therapy to enhance foetal lung maturity
     Route: 065
  6. DEXAMETHASONE [Suspect]
     Active Substance: DEXAMETHASONE
     Indication: Nervous system disorder prophylaxis
  7. MAGNESIUM SULFATE [Suspect]
     Active Substance: MAGNESIUM SULFATE
     Indication: Maternal therapy to enhance foetal lung maturity
     Route: 065
  8. MAGNESIUM SULFATE [Suspect]
     Active Substance: MAGNESIUM SULFATE
     Indication: Nervous system disorder prophylaxis

REACTIONS (4)
  - Drug ineffective [Unknown]
  - Exposure during pregnancy [Unknown]
  - Premature delivery [Unknown]
  - Condition aggravated [Unknown]
